FAERS Safety Report 12937744 (Version 1)
Quarter: 2016Q4

REPORT INFORMATION
  Report Type: Spontaneous
  Country: US (occurrence: US)
  Receive Date: 20161114
  Receipt Date: 20161114
  Transmission Date: 20170207
  Serious: No
  Sender: FDA-Public Use
  Company Number: US-GE HEALTHCARE MEDICAL DIAGNOSTICS-VISP-PR-1607S-0398

PATIENT
  Age: 69 Year
  Sex: Female
  Weight: 71.73 kg

DRUGS (4)
  1. VISIPAQUE [Suspect]
     Active Substance: IODIXANOL
     Indication: DIAGNOSTIC PROCEDURE
  2. VISIPAQUE [Suspect]
     Active Substance: IODIXANOL
     Indication: DYSPHONIA
     Route: 042
     Dates: start: 20160513, end: 20160513
  3. VISIPAQUE [Suspect]
     Active Substance: IODIXANOL
     Indication: THYROID MASS
  4. VISIPAQUE [Suspect]
     Active Substance: IODIXANOL
     Indication: DYSPHAGIA

REACTIONS (2)
  - Rash [Recovered/Resolved]
  - Pruritus [Recovered/Resolved]

NARRATIVE: CASE EVENT DATE: 20160513
